FAERS Safety Report 9930461 (Version 2)
Quarter: 2014Q2

REPORT INFORMATION
  Report Type: Spontaneous
  Country: US (occurrence: US)
  Receive Date: 20140227
  Receipt Date: 20140403
  Transmission Date: 20141212
  Serious: Yes (Other)
  Sender: FDA-Public Use
  Company Number: US-GILEAD-2014-0095586

PATIENT
  Age: 71 Year
  Sex: Female

DRUGS (2)
  1. LETAIRIS [Suspect]
     Indication: PRODUCT USED FOR UNKNOWN INDICATION
     Dosage: 5 MG, QD
     Route: 048
     Dates: start: 20080731
  2. REVATIO [Concomitant]
     Dosage: UNK

REACTIONS (8)
  - Enterocolitis haemorrhagic [Unknown]
  - Syncope [Unknown]
  - Exercise tolerance decreased [Unknown]
  - Cough [Unknown]
  - Chronic obstructive pulmonary disease [Unknown]
  - Unevaluable event [Unknown]
  - Dyspnoea [Unknown]
  - Nocturnal dyspnoea [Unknown]
